FAERS Safety Report 4545342-4 (Version None)
Quarter: 2005Q1

REPORT INFORMATION
  Report Type: 
  Country: None (occurrence: None)
  Receive Date: 20050103
  Receipt Date: 20041228
  Transmission Date: 20050727
  Serious: Yes (Other)
  Sender: FDA-Public Use
  Company Number: HQWYE436202JUN03

PATIENT
  Age: 27 Year
  Sex: Female

DRUGS (5)
  1. RHINADVIL (IBUPROFEN/PSEUDOEPHEDRINE, TABLET) [Suspect]
     Dosage: ONE TABLET
     Route: 048
     Dates: start: 20030506, end: 20030506
  2. FOSFOMYCIN TROMETAMOL (FOSFOMYCIN TROMETAMOL) [Concomitant]
  3. FURADANTIN [Concomitant]
  4. DERINOX (CETRIMONIUM BROMIDE/NAPHAZOLINE NITRATE/PHENYLEPHRINE HYDROCH [Concomitant]
  5. TRINORDIOL (LEVONORGESTREL/ETHINYL ESTRADIOL) [Concomitant]

REACTIONS (1)
  - DRUG EXPOSURE DURING PREGNANCY [None]
